FAERS Safety Report 4747131-4 (Version None)
Quarter: 2005Q3

REPORT INFORMATION
  Report Type: 
  Country: None (occurrence: None)
  Receive Date: 20050815
  Receipt Date: 20050804
  Transmission Date: 20060218
  Serious: Yes (Death, Hospitalization, Other)
  Sender: FDA-Public Use
  Company Number: 2004074993

PATIENT
  Age: 55 Year
  Sex: Male
  Weight: 108.8633 kg

DRUGS (12)
  1. NEURONTIN [Suspect]
     Indication: DIABETIC NEUROPATHY
     Dosage: 3200 MG (800 MG, 4 IN 1 D),
     Dates: start: 19960701
  2. NEURONTIN [Suspect]
     Indication: PAIN
     Dosage: 3200 MG (800 MG, 4 IN 1 D),
     Dates: start: 19960701
  3. CELEBREX [Suspect]
     Indication: OSTEOARTHRITIS
     Dates: start: 19990101
  4. PAXIL [Suspect]
     Indication: DEPRESSION
     Dates: start: 19971001
  5. AMITRIPTYLINE WITH PERPHENAZINE (AMITRIPTYLINE HYDROCHLORIDE, PERPHENA [Suspect]
     Indication: DEPRESSION
  6. OXYCONTIN [Suspect]
     Indication: PAIN
  7. PARACETAMOL (PARACETAMOL) [Suspect]
     Indication: ILL-DEFINED DISORDER
  8. NEXIUM [Concomitant]
  9. BACLOFEN [Concomitant]
  10. INSULIN [Concomitant]
  11. DURAGESIC-100 [Concomitant]
  12. GLUCOPHAGE [Concomitant]

REACTIONS (22)
  - ACCIDENTAL OVERDOSE [None]
  - BLADDER STENOSIS [None]
  - COMPLETED SUICIDE [None]
  - CONDITION AGGRAVATED [None]
  - DEPRESSION [None]
  - DRUG ABUSER [None]
  - DRUG INEFFECTIVE [None]
  - DRUG TOXICITY [None]
  - GRAND MAL CONVULSION [None]
  - HYPOKALAEMIA [None]
  - HYPOTENSION [None]
  - INJURY [None]
  - MENTAL STATUS CHANGES [None]
  - METABOLIC ACIDOSIS [None]
  - MULTIPLE DRUG OVERDOSE [None]
  - OVERDOSE [None]
  - PNEUMONIA ASPIRATION [None]
  - PSYCHOTIC DISORDER [None]
  - RESPIRATORY DISTRESS [None]
  - RESPIRATORY FAILURE [None]
  - SOMNOLENCE [None]
  - SUICIDE ATTEMPT [None]
